FAERS Safety Report 23942651 (Version 1)
Quarter: 2024Q2

REPORT INFORMATION
  Report Type: Spontaneous
  Country: US (occurrence: US)
  Receive Date: 20240605
  Receipt Date: 20240605
  Transmission Date: 20240716
  Serious: No
  Sender: FDA-Public Use
  Company Number: US-GSK-US2024068861

PATIENT
  Sex: Male

DRUGS (1)
  1. BREO ELLIPTA [Suspect]
     Active Substance: FLUTICASONE FUROATE\VILANTEROL TRIFENATATE
     Indication: Chronic obstructive pulmonary disease
     Dosage: 1 PUFF(S), QD, 100MCG-25MCG
     Route: 055
     Dates: start: 202312

REACTIONS (3)
  - Blood pressure increased [Unknown]
  - Chest discomfort [Not Recovered/Not Resolved]
  - Therapeutic product effect incomplete [Unknown]
